FAERS Safety Report 22118580 (Version 1)
Quarter: 2023Q1

REPORT INFORMATION
  Report Type: Report from Study
  Country: BR (occurrence: BR)
  Receive Date: 20230321
  Receipt Date: 20230321
  Transmission Date: 20230418
  Serious: Yes (Hospitalization, Other)
  Sender: FDA-Public Use
  Company Number: BR-AMGEN-BRASL2022095990

PATIENT
  Age: 62 Year
  Sex: Male

DRUGS (12)
  1. VECTIBIX [Suspect]
     Active Substance: PANITUMUMAB
     Indication: Colorectal cancer
     Dosage: UNK
     Route: 042
     Dates: start: 20220524, end: 2022
  2. VECTIBIX [Suspect]
     Active Substance: PANITUMUMAB
     Indication: Intestinal metastasis
     Dosage: UNK  Q2WK
     Route: 042
     Dates: start: 202206
  3. VECTIBIX [Suspect]
     Active Substance: PANITUMUMAB
     Indication: Cervix carcinoma
     Dosage: UNK
     Route: 042
     Dates: start: 20220706
  4. LOSARTAN POTASSIUM [Concomitant]
     Active Substance: LOSARTAN POTASSIUM
     Indication: Blood pressure abnormal
     Dosage: UNK
  5. PANTOPRAZOLE SODIUM [Concomitant]
     Active Substance: PANTOPRAZOLE SODIUM
     Dosage: UNK
  6. GLIFAGE [Concomitant]
     Active Substance: METFORMIN HYDROCHLORIDE
     Indication: Diabetes mellitus
     Dosage: UNK
  7. RIVOTRIL [Concomitant]
     Active Substance: CLONAZEPAM
     Indication: Sleep disorder
     Dosage: 2 MILLIGRAM
  8. XARELTO [Concomitant]
     Active Substance: RIVAROXABAN
     Indication: Pulmonary embolism
     Dosage: 20 MILLIGRAM
  9. ROSUVASTATIN [Concomitant]
     Active Substance: ROSUVASTATIN
     Indication: Blood cholesterol abnormal
     Dosage: 40 MILLIGRAM
  10. TRAMADOL [Concomitant]
     Active Substance: TRAMADOL
     Dosage: UNK
  11. METAMIZOLE [Concomitant]
     Active Substance: METAMIZOLE
     Dosage: UNK
  12. LOSARTAN POTASSIUM [Concomitant]
     Active Substance: LOSARTAN POTASSIUM
     Indication: Hypertension
     Dosage: UNK

REACTIONS (27)
  - Rectal haemorrhage [Not Recovered/Not Resolved]
  - Pulmonary embolism [Unknown]
  - Spinal fracture [Recovering/Resolving]
  - Neoplasm malignant [Unknown]
  - Mucosal dryness [Unknown]
  - Somnolence [Unknown]
  - Anal pruritus [Unknown]
  - Ageusia [Not Recovered/Not Resolved]
  - Skin irritation [Recovering/Resolving]
  - Skin reaction [Recovering/Resolving]
  - Skin mass [Recovering/Resolving]
  - Insomnia [Unknown]
  - Headache [Unknown]
  - Constipation [Recovering/Resolving]
  - Hyperhidrosis [Not Recovered/Not Resolved]
  - Vomiting [Unknown]
  - Decreased appetite [Unknown]
  - Diarrhoea [Recovering/Resolving]
  - Cough [Unknown]
  - Skin exfoliation [Not Recovered/Not Resolved]
  - Erythema [Not Recovered/Not Resolved]
  - Acne [Recovered/Resolved]
  - Eye irritation [Not Recovered/Not Resolved]
  - Glossodynia [Not Recovered/Not Resolved]
  - Spinal pain [Recovering/Resolving]
  - Anorectal discomfort [Recovering/Resolving]
  - Proctalgia [Not Recovered/Not Resolved]

NARRATIVE: CASE EVENT DATE: 20220101
